FAERS Safety Report 17628515 (Version 1)
Quarter: 2020Q2

REPORT INFORMATION
  Report Type: Spontaneous
  Country: US (occurrence: US)
  Receive Date: 20200406
  Receipt Date: 20200406
  Transmission Date: 20200713
  Serious: No
  Sender: FDA-Public Use
  Company Number: US-CELGENEUS-USA-20200309029

PATIENT
  Age: 57 Year
  Sex: Male

DRUGS (3)
  1. OTEZLA [Suspect]
     Active Substance: APREMILAST
     Indication: ILL-DEFINED DISORDER
  2. OTEZLA [Suspect]
     Active Substance: APREMILAST
     Indication: PSORIASIS
     Dosage: 60 MILLIGRAM
     Route: 048
     Dates: start: 2016
  3. OTEZLA [Suspect]
     Active Substance: APREMILAST
     Indication: PITYRIASIS RUBRA PILARIS

REACTIONS (3)
  - Nail growth abnormal [Unknown]
  - Onychalgia [Unknown]
  - Psoriasis [Unknown]

NARRATIVE: CASE EVENT DATE: 20200325
